FAERS Safety Report 4882317-X (Version None)
Quarter: 2006Q1

REPORT INFORMATION
  Report Type: 
  Country: None (occurrence: None)
  Receive Date: 20060112
  Receipt Date: 20051229
  Transmission Date: 20060701
  Serious: Yes (Life-Threatening, Hospitalization, Other)
  Sender: FDA-Public Use
  Company Number: 2005-00434

PATIENT
  Age: 54 Year
  Sex: Female

DRUGS (1)
  1. VELCADE [Suspect]
     Indication: WALDENSTROM'S MACROGLOBULINAEMIA
     Dosage: 1.30 MG/M2, INTRAVENOUS; 1.00 MG/M2, INTRAVENOUS
     Route: 042
     Dates: start: 20040405, end: 20050819

REACTIONS (3)
  - CONJUNCTIVITIS INFECTIVE [None]
  - SEPSIS [None]
  - VASCULITIS [None]
